FAERS Safety Report 13739469 (Version 8)
Quarter: 2018Q3

REPORT INFORMATION
  Report Type: Report from Study
  Country: IT (occurrence: IT)
  Receive Date: 20170711
  Receipt Date: 20180830
  Transmission Date: 20181010
  Serious: Yes (Hospitalization, Other)
  Sender: FDA-Public Use
  Company Number: IT-EISAI MEDICAL RESEARCH-EC-2017-029214

PATIENT
  Age: 20 Year
  Sex: Female
  Weight: 99.1 kg

DRUGS (15)
  1. LENVATINIB [Suspect]
     Active Substance: LENVATINIB
     Route: 048
     Dates: start: 20170717, end: 20170813
  2. LENVATINIB [Suspect]
     Active Substance: LENVATINIB
     Route: 048
     Dates: start: 20170911, end: 20170912
  3. PANTORC [Concomitant]
     Active Substance: PANTOPRAZOLE SODIUM
  4. AMLODIPINA [Concomitant]
     Active Substance: AMLODIPINE BESYLATE
  5. LENVATINIB [Suspect]
     Active Substance: LENVATINIB
     Route: 048
     Dates: start: 20170816, end: 20170908
  6. RAMIPRIL. [Concomitant]
     Active Substance: RAMIPRIL
  7. CLEXANE [Concomitant]
     Active Substance: ENOXAPARIN SODIUM
  8. LENVATINIB [Suspect]
     Active Substance: LENVATINIB
     Route: 048
     Dates: start: 20170913, end: 20171201
  9. LENVATINIB [Suspect]
     Active Substance: LENVATINIB
     Route: 048
     Dates: start: 20171203, end: 20180328
  10. LENVATINIB [Suspect]
     Active Substance: LENVATINIB
     Indication: OSTEOSARCOMA
     Route: 048
     Dates: start: 20170619, end: 20170706
  11. EUTIROX [Concomitant]
     Active Substance: LEVOTHYROXINE SODIUM
  12. LENVATINIB [Suspect]
     Active Substance: LENVATINIB
     Route: 048
     Dates: start: 20170711, end: 20170712
  13. RANITIDINE. [Concomitant]
     Active Substance: RANITIDINE
  14. SOLDESAM [Concomitant]
     Active Substance: DEXAMETHASONE
  15. GEMCITABINE [Concomitant]
     Active Substance: GEMCITABINE\GEMCITABINE HYDROCHLORIDE

REACTIONS (4)
  - Diarrhoea [Recovered/Resolved]
  - Pyrexia [Recovered/Resolved]
  - Dyspnoea [Recovered/Resolved]
  - Lymphoedema [Recovered/Resolved]

NARRATIVE: CASE EVENT DATE: 20170706
